FAERS Safety Report 25034883 (Version 1)
Quarter: 2025Q1

REPORT INFORMATION
  Report Type: Spontaneous
  Country: GB (occurrence: GB)
  Receive Date: 20250304
  Receipt Date: 20250304
  Transmission Date: 20250409
  Serious: Yes (Hospitalization, Other)
  Sender: AUROBINDO
  Company Number: GB-MHRA-MED-202502171152506210-WYVNH

PATIENT
  Age: 76 Year
  Sex: Female

DRUGS (2)
  1. LOSARTAN [Suspect]
     Active Substance: LOSARTAN
     Indication: Hypertension
     Dosage: 50 MILLIGRAM, ONCE A DAY (50MG OD)
     Route: 065
     Dates: end: 20250216
  2. QUININE [Concomitant]
     Active Substance: QUININE
     Indication: Muscle spasms
     Route: 065

REACTIONS (1)
  - Hyponatraemic seizure [Recovering/Resolving]

NARRATIVE: CASE EVENT DATE: 20250216
